FAERS Safety Report 9772990 (Version 1)
Quarter: 2013Q4

REPORT INFORMATION
  Report Type: Spontaneous
  Country: DE (occurrence: None)
  Receive Date: 20131217
  Receipt Date: 20131217
  Transmission Date: 20140711
  Serious: Yes (Hospitalization, Congenital Anomaly)
  Sender: FDA-Public Use
  Company Number: DE-DEXPHARM-20131150

PATIENT
  Age: 01 Day
  Sex: Female

DRUGS (2)
  1. OMEPRAZOLE [Suspect]
     Indication: ABDOMINAL PAIN UPPER
     Dosage: 20 MG/D AND LATER 40 MG/D
     Route: 064
     Dates: start: 20090205, end: 20090213
  2. FEMIBION [Concomitant]

REACTIONS (5)
  - Coarctation of the aorta [None]
  - Bicuspid aortic valve [None]
  - Patent ductus arteriosus [None]
  - Atrial septal defect [None]
  - Maternal drugs affecting foetus [None]
